FAERS Safety Report 5820041-7 (Version None)
Quarter: 2008Q3

REPORT INFORMATION
  Report Type: 
  Country: None (occurrence: None)
  Receive Date: 20080724
  Receipt Date: 20080717
  Transmission Date: 20090109
  Serious: Yes (Hospitalization, Disabling)
  Sender: FDA-Public Use
  Company Number: HQWYE111112SEP07

PATIENT
  Sex: Female
  Weight: 84.9 kg

DRUGS (2)
  1. EFFEXOR [Suspect]
     Indication: DEPRESSION
     Dosage: UNKNOWN
  2. TRAZODONE HCL [Concomitant]
     Indication: DEPRESSION
     Dosage: UNKNOWN

REACTIONS (15)
  - ANXIETY [None]
  - DRUG INEFFECTIVE [None]
  - FEELING ABNORMAL [None]
  - HALLUCINATION, VISUAL [None]
  - INJURY [None]
  - INTERNAL INJURY [None]
  - INTERVERTEBRAL DISC PROTRUSION [None]
  - MANIA [None]
  - NERVOUS SYSTEM DISORDER [None]
  - PAIN [None]
  - PARALYSIS [None]
  - SPINAL CORD INJURY [None]
  - SUICIDAL IDEATION [None]
  - SUICIDE ATTEMPT [None]
  - THORACIC VERTEBRAL FRACTURE [None]
